FAERS Safety Report 21027736 (Version 2)
Quarter: 2022Q3

REPORT INFORMATION
  Report Type: Report from Study
  Country: US (occurrence: US)
  Receive Date: 20220630
  Receipt Date: 20220701
  Transmission Date: 20221027
  Serious: Yes (Hospitalization, Other)
  Sender: FDA-Public Use
  Company Number: US-RECORDATI-2022002969

PATIENT

DRUGS (9)
  1. SIGNIFOR LAR [Suspect]
     Active Substance: PASIREOTIDE PAMOATE
     Indication: Pituitary-dependent Cushing^s syndrome
     Dosage: 10 MILLIGRAM EVERY 28 DAYS
     Dates: start: 202110
  2. SIGNIFOR LAR [Suspect]
     Active Substance: PASIREOTIDE PAMOATE
     Dosage: 20 MILLIGRAM EVERY 28 DAYS
  3. LEVOTHYROXINE [Concomitant]
     Active Substance: LEVOTHYROXINE
     Indication: Hypothyroidism
     Dosage: 112 MICROGRAM SIX DAYS A WEEK
  4. PREDNISONE [Concomitant]
     Active Substance: PREDNISONE
     Indication: Pituitary-dependent Cushing^s syndrome
     Dosage: 2.5 MILLIGRAM, QD
  5. POTASSIUM [Concomitant]
     Active Substance: POTASSIUM
     Indication: Hypokalaemia
     Dosage: 40 MILLIEQUIVALENT, QD
  6. ESCITALOPRAM [Concomitant]
     Active Substance: ESCITALOPRAM OXALATE
     Indication: Anxiety
     Dosage: 10 MILLIGRAM, QD
  7. CALCIUM PLUS D3 [Concomitant]
     Indication: Calcium deficiency
     Dosage: 1000/800
  8. VERAPAMIL [Concomitant]
     Active Substance: VERAPAMIL HYDROCHLORIDE
     Indication: Hypertension
     Dosage: 120 MILLIGRAM, QD (EXTENDED RELEASE FORMULATION)
  9. TYLENOL EXTRA STRENGTH [Concomitant]
     Active Substance: ACETAMINOPHEN
     Indication: Pain
     Dosage: 500 MILLIGRAM, PRN

REACTIONS (5)
  - Lumbar vertebral fracture [Not Recovered/Not Resolved]
  - Seizure [Recovered/Resolved]
  - Circulatory collapse [Unknown]
  - Blood glucose decreased [Unknown]
  - Atrial fibrillation [Unknown]

NARRATIVE: CASE EVENT DATE: 20220501
